FAERS Safety Report 5507061-7 (Version None)
Quarter: 2007Q4

REPORT INFORMATION
  Report Type: 
  Country: None (occurrence: None)
  Receive Date: 20071105
  Receipt Date: 20071009
  Transmission Date: 20080405
  Serious: No
  Sender: FDA-Public Use
  Company Number: US-BOEHRINGER INGELHEIM PHARMACEUTICALS, INC.-2007-BP-22561BP

PATIENT
  Sex: Male

DRUGS (7)
  1. SPIRIVA [Suspect]
     Indication: EMPHYSEMA
     Route: 055
  2. SPIRIVA [Suspect]
     Indication: DYSPNOEA
  3. IPRATROPIUM BROMIDE [Concomitant]
     Indication: EMPHYSEMA
     Dates: start: 20000401
  4. IPRATROPIUM BROMIDE [Concomitant]
     Indication: DYSPNOEA
  5. ALBUTEROL SULFATE [Concomitant]
     Indication: EMPHYSEMA
     Dates: start: 20000401
  6. ALBUTEROL SULFATE [Concomitant]
     Indication: DYSPNOEA
  7. OXYGEN [Concomitant]

REACTIONS (1)
  - DRUG INEFFECTIVE [None]
